FAERS Safety Report 8637101 (Version 2)
Quarter: 2013Q2

REPORT INFORMATION
  Report Type: Spontaneous
  Country: US (occurrence: US)
  Receive Date: 20120627
  Receipt Date: 20130624
  Transmission Date: 20140414
  Serious: No
  Sender: FDA-Public Use
  Company Number: US-ASTRAZENECA-2012SE36478

PATIENT
  Age: 21354 Day
  Sex: Female

DRUGS (20)
  1. NEXIUM [Suspect]
     Indication: DYSPEPSIA
     Route: 048
     Dates: start: 20060812
  2. NEXIUM [Suspect]
     Indication: DYSPEPSIA
     Route: 048
     Dates: start: 20081013, end: 20110327
  3. PEPCID [Concomitant]
     Route: 048
     Dates: start: 20130508
  4. VITAMIN D [Concomitant]
  5. IRON [Concomitant]
  6. CALCIUM [Concomitant]
  7. HYDROCODONE [Concomitant]
  8. MELOXICAM [Concomitant]
  9. ALPRAZOLAM [Concomitant]
     Dates: start: 20081013
  10. LIPITOR/ATORVASTATIN CALCIUM [Concomitant]
     Route: 048
     Dates: start: 20060615
  11. NORVASC [Concomitant]
     Route: 048
     Dates: start: 20100222
  12. LORTAB [Concomitant]
     Indication: PAIN
     Dosage: 10MG-500MG
     Dates: start: 20081013
  13. TRAMADOL HCL [Concomitant]
     Dosage: 50MG 1-2 EVERY 6 HRS AS NEEDED
     Route: 048
  14. FOSAMAX [Concomitant]
     Dosage: 35MG EVERY WEEK IN THE MORNING AT LEAST 30MIN BEFORE THE FIRST FOOD ,BEVERAGE OR MEDICATION OF THE D
     Route: 048
     Dates: start: 20100128
  15. PRAVASTATIN SODIUM [Concomitant]
     Route: 048
     Dates: start: 20121001
  16. ZYRTEC [Concomitant]
     Dates: start: 20130204
  17. GABAPENTIN [Concomitant]
     Route: 048
     Dates: start: 20100112
  18. MIRTAZAPINE [Concomitant]
     Route: 048
     Dates: start: 20060308
  19. DIAZEPAM [Concomitant]
     Route: 048
     Dates: start: 20060308
  20. CYCLOBENZAPRINE [Concomitant]
     Dosage: 10MG  Q8H PRF
     Route: 048
     Dates: start: 20050203

REACTIONS (9)
  - Osteoporosis [Unknown]
  - Multiple fractures [Unknown]
  - Back injury [Unknown]
  - Limb injury [Unknown]
  - Bone disorder [Unknown]
  - Bone pain [Unknown]
  - Osteogenesis imperfecta [Unknown]
  - Calcium deficiency [Unknown]
  - Vitamin D deficiency [Unknown]
